FAERS Safety Report 20723002 (Version 1)
Quarter: 2022Q2

REPORT INFORMATION
  Report Type: Spontaneous
  Country: IT (occurrence: IT)
  Receive Date: 20220419
  Receipt Date: 20220419
  Transmission Date: 20220721
  Serious: Yes (Other)
  Sender: FDA-Public Use
  Company Number: IT-LUPIN PHARMACEUTICALS INC.-2022-05656

PATIENT
  Sex: Male

DRUGS (13)
  1. PHENYTOIN SODIUM [Suspect]
     Active Substance: PHENYTOIN SODIUM
     Indication: Epileptic encephalopathy
     Dosage: UNK
     Route: 065
  2. CLOBAZAM [Suspect]
     Active Substance: CLOBAZAM
     Indication: Epileptic encephalopathy
     Dosage: UNK
     Route: 065
  3. LEVETIRACETAM [Suspect]
     Active Substance: LEVETIRACETAM
     Indication: Epileptic encephalopathy
     Dosage: UNK
     Route: 065
  4. TOPIRAMATE [Suspect]
     Active Substance: TOPIRAMATE
     Indication: Epileptic encephalopathy
     Dosage: UNK
     Route: 065
  5. NITRAZEPAM [Suspect]
     Active Substance: NITRAZEPAM
     Indication: Epileptic encephalopathy
     Dosage: UNK
     Route: 065
  6. CLONAZEPAM [Suspect]
     Active Substance: CLONAZEPAM
     Indication: Epileptic encephalopathy
     Dosage: UNK
     Route: 065
  7. ADRENOCORTICOTROPIN [Concomitant]
     Indication: Epileptic encephalopathy
     Dosage: UNK DEPOT INJECTION
     Route: 030
  8. MIDAZOLAM [Concomitant]
     Active Substance: MIDAZOLAM
     Indication: Epileptic encephalopathy
     Dosage: UNK-HIGH-DOSE
     Route: 042
  9. VALPROIC ACID [Concomitant]
     Active Substance: VALPROIC ACID
     Indication: Epileptic encephalopathy
     Dosage: UNK
     Route: 065
  10. DIAZEPAM [Concomitant]
     Active Substance: DIAZEPAM
     Indication: Epileptic encephalopathy
     Dosage: UNK
     Route: 065
     Dates: start: 20210806
  11. PYRIDOXINE [Concomitant]
     Active Substance: PYRIDOXINE
     Indication: Epileptic encephalopathy
     Dosage: UNK
     Route: 065
  12. METHYLPREDNISOLONE [Concomitant]
     Active Substance: METHYLPREDNISOLONE
     Indication: Epileptic encephalopathy
     Dosage: UNK
     Route: 065
  13. DEFLAZACORT [Concomitant]
     Active Substance: DEFLAZACORT
     Indication: Epileptic encephalopathy
     Dosage: UNK
     Route: 065

REACTIONS (4)
  - Drug ineffective for unapproved indication [Unknown]
  - Off label use [Unknown]
  - Myoclonus [Unknown]
  - Psychomotor hyperactivity [Unknown]
